FAERS Safety Report 17159269 (Version 1)
Quarter: 2019Q4

REPORT INFORMATION
  Report Type: Spontaneous
  Country: BR (occurrence: BR)
  Receive Date: 20191216
  Receipt Date: 20191216
  Transmission Date: 20200122
  Serious: Yes (Hospitalization)
  Sender: FDA-Public Use
  Company Number: BR-EMD SERONO-7053527

PATIENT
  Sex: Female

DRUGS (5)
  1. REBIF [Suspect]
     Active Substance: INTERFERON BETA-1A
     Indication: RELAPSING-REMITTING MULTIPLE SCLEROSIS
     Dates: start: 200902
  2. MAGNESIUM HYDROXIDE. [Concomitant]
     Active Substance: MAGNESIUM HYDROXIDE
  3. MELOXICAM. [Concomitant]
     Active Substance: MELOXICAM
  4. REBIF [Suspect]
     Active Substance: INTERFERON BETA-1A
     Route: 058
  5. PARACETAMOL [Concomitant]
     Active Substance: ACETAMINOPHEN

REACTIONS (6)
  - Neoplasm malignant [Recovered/Resolved]
  - Alopecia [Unknown]
  - Branchial cyst [Recovered/Resolved]
  - Hypoaesthesia [Unknown]
  - Injection site erythema [Unknown]
  - Blood pressure increased [Recovering/Resolving]

NARRATIVE: CASE EVENT DATE: 2010
